FAERS Safety Report 16526271 (Version 5)
Quarter: 2020Q4

REPORT INFORMATION
  Report Type: Report from Study
  Country: BE (occurrence: BE)
  Receive Date: 20190703
  Receipt Date: 20201102
  Transmission Date: 20210113
  Serious: Yes (Life-Threatening, Hospitalization, Other)
  Sender: FDA-Public Use
  Company Number: BE-SA-2017SA263997

PATIENT

DRUGS (13)
  1. NOOTROPIL [Concomitant]
     Active Substance: PIRACETAM
     Dosage: 1200 MG, BID
     Route: 065
  2. TRAZODONE [Concomitant]
     Active Substance: TRAZODONE HYDROCHLORIDE
     Dosage: 100 MG, QD
     Route: 065
  3. LEVOTHYROXINE. [Concomitant]
     Active Substance: LEVOTHYROXINE
     Dosage: 125 UNK, QD
     Route: 065
  4. GABAPENTINE [Concomitant]
     Active Substance: GABAPENTIN
     Dosage: UNK UNK, UNK
     Route: 065
  5. ALEMTUZUMAB [Suspect]
     Active Substance: ALEMTUZUMAB
     Dosage: 12 MG, QD
     Route: 041
     Dates: start: 20161214, end: 20161216
  6. FAMPYRA [Concomitant]
     Active Substance: DALFAMPRIDINE
     Dosage: 10 MG, QD
     Route: 065
  7. ALEMTUZUMAB [Suspect]
     Active Substance: ALEMTUZUMAB
     Indication: RELAPSING MULTIPLE SCLEROSIS
     Dosage: 12 MG,QD
     Route: 041
     Dates: start: 20171218, end: 20171220
  8. COLOFIBER [Concomitant]
     Dosage: 7 G, QD
     Route: 065
  9. MESTINON [Concomitant]
     Active Substance: PYRIDOSTIGMINE BROMIDE
     Dosage: 10 MG, TID
     Route: 065
  10. ELOCOM [Concomitant]
     Active Substance: MOMETASONE FUROATE
     Dosage: 100 ML, QD
     Route: 065
  11. L-THYROXINE [LEVOTHYROXINE] [Concomitant]
     Active Substance: LEVOTHYROXINE
     Dosage: 125 UG, QD
     Route: 065
  12. ALEMTUZUMAB [Suspect]
     Active Substance: ALEMTUZUMAB
     Dosage: 12 MG, QD
     Route: 041
     Dates: start: 20151214, end: 20151218
  13. TAMSULOSINE SANDOZ [Concomitant]
     Dosage: 0.4 MG, QD
     Route: 065

REACTIONS (9)
  - Lip swelling [Recovered/Resolved]
  - Diarrhoea [Recovered/Resolved]
  - Cystitis [Recovered/Resolved]
  - Guillain-Barre syndrome [Not Recovered/Not Resolved]
  - Headache [Recovering/Resolving]
  - Rash [Recovered/Resolved]
  - Abdominal pain [Recovered/Resolved]
  - Influenza like illness [Recovered/Resolved]
  - Urinary tract infection [Recovered/Resolved]

NARRATIVE: CASE EVENT DATE: 20171218
